FAERS Safety Report 23079432 (Version 3)
Quarter: 2023Q4

REPORT INFORMATION
  Report Type: Report from Study
  Country: US (occurrence: US)
  Receive Date: 20231018
  Receipt Date: 20231211
  Transmission Date: 20240109
  Serious: No
  Sender: FDA-Public Use
  Company Number: US-LUNDBECK-DKLU3068315

PATIENT
  Age: 65 Year
  Sex: Female

DRUGS (1)
  1. VYEPTI [Suspect]
     Active Substance: EPTINEZUMAB-JJMR
     Indication: Migraine
     Route: 041
     Dates: start: 20230823

REACTIONS (6)
  - Fall [Unknown]
  - Contusion [Unknown]
  - Myalgia [Unknown]
  - Migraine [Unknown]
  - Therapeutic response shortened [Unknown]
  - Drug effect less than expected [Unknown]
